FAERS Safety Report 13079905 (Version 1)
Quarter: 2017Q1

REPORT INFORMATION
  Report Type: Spontaneous
  Country: CA (occurrence: CA)
  Receive Date: 20170103
  Receipt Date: 20170103
  Transmission Date: 20170428
  Serious: Yes (Disabling)
  Sender: FDA-Public Use
  Company Number: CA-TEVA-725842ACC

PATIENT
  Age: 51 Year

DRUGS (8)
  1. SPIRIVA [Concomitant]
     Active Substance: TIOTROPIUM BROMIDE MONOHYDRATE
  2. PANTOPRAZOLE [Concomitant]
     Active Substance: PANTOPRAZOLE SODIUM
  3. TEVA-PREDNISONE [Suspect]
     Active Substance: PREDNISONE
     Indication: PNEUMONIA
  4. VENTOLIN [Concomitant]
     Active Substance: ALBUTEROL SULFATE
  5. TEVA-CLARITHROMYCIN [Suspect]
     Active Substance: CLARITHROMYCIN
     Indication: PNEUMONIA
     Route: 048
  6. FUROSEMIDE. [Concomitant]
     Active Substance: FUROSEMIDE
  7. ROSUVASTATIN. [Concomitant]
     Active Substance: ROSUVASTATIN
  8. SYMBICORT 200 TURBUHALER [Concomitant]

REACTIONS (1)
  - Hallucination [Recovered/Resolved]
